FAERS Safety Report 6858337-2 (Version None)
Quarter: 2010Q3

REPORT INFORMATION
  Report Type: 
  Country: None (occurrence: None)
  Receive Date: 20100719
  Receipt Date: 20080403
  Transmission Date: 20110219
  Serious: No
  Sender: FDA-Public Use
  Company Number: US-PFIZER INC-2008011567

PATIENT
  Sex: Female
  Weight: 77.3 kg

DRUGS (2)
  1. CHANTIX [Suspect]
     Indication: SMOKING CESSATION THERAPY
     Route: 048
     Dates: start: 20080127, end: 20080129
  2. ALBUTEROL [Concomitant]
     Indication: ASTHMA

REACTIONS (5)
  - BREAST TENDERNESS [None]
  - HEADACHE [None]
  - MYALGIA [None]
  - NERVOUSNESS [None]
  - POLLAKIURIA [None]
